FAERS Safety Report 6339005-2 (Version None)
Quarter: 2009Q3

REPORT INFORMATION
  Report Type: 
  Country: None (occurrence: None)
  Receive Date: 20090903
  Receipt Date: 20090826
  Transmission Date: 20100115
  Serious: Yes (Other)
  Sender: FDA-Public Use
  Company Number: PHHY2009DE37150

PATIENT
  Sex: Male

DRUGS (2)
  1. SANDOSTATIN LAR [Suspect]
     Indication: ACROMEGALY
     Dosage: UNK
     Route: 058
  2. SANDOSTATIN LAR [Suspect]
     Dosage: 30 MG, QMO
     Route: 058
     Dates: start: 20090101

REACTIONS (1)
  - MULTIPLE SCLEROSIS [None]
